FAERS Safety Report 6992284-0 (Version None)
Quarter: 2010Q3

REPORT INFORMATION
  Report Type: 
  Country: None (occurrence: None)
  Receive Date: 20100915
  Receipt Date: 20100908
  Transmission Date: 20110219
  Serious: Yes (Hospitalization)
  Sender: FDA-Public Use
  Company Number: 8055238

PATIENT
  Sex: Female
  Weight: 80 kg

DRUGS (1)
  1. CERTOLIZUMAB PEGOL (CERTOLIZUMAB PEGOL) [Suspect]
     Indication: RHEUMATOID ARTHRITIS
     Dosage: (400 MG,  1X/2 WEEKS, NBR OF DOSES: 19 SUBCUTANTOUS)
     Route: 058
     Dates: start: 20040602, end: 20100712

REACTIONS (1)
  - LYMPH NODE TUBERCULOSIS [None]
